FAERS Safety Report 6359323-1 (Version None)
Quarter: 2009Q3

REPORT INFORMATION
  Report Type: 
  Country: None (occurrence: None)
  Receive Date: 20090917
  Receipt Date: 20090814
  Transmission Date: 20100115
  Serious: Yes (Hospitalization, Other)
  Sender: FDA-Public Use
  Company Number: US-NOVOPROD-290543

PATIENT
  Sex: Female
  Weight: 115.65 kg

DRUGS (14)
  1. LEVEMIR [Suspect]
     Indication: TYPE 1 DIABETES MELLITUS
     Dosage: 24 U, BID
     Route: 058
     Dates: start: 20060101
  2. NOVOLOG [Suspect]
     Indication: TYPE 1 DIABETES MELLITUS
     Dosage: 8-14 UNITS 3-4 TIMES A DAY
     Route: 058
     Dates: start: 20070101
  3. LYRICA [Concomitant]
     Indication: NEUROPATHY PERIPHERAL
  4. MAXALT                             /01406501/ [Concomitant]
     Indication: MIGRAINE
     Dosage: PRN
  5. EFFEXOR [Concomitant]
     Indication: DEPRESSION
  6. TRAZODONE [Concomitant]
     Indication: SLEEP DISORDER
  7. LOVASTATIN [Concomitant]
     Indication: BLOOD PRESSURE INCREASED
  8. ZYRTEC [Concomitant]
     Indication: MULTIPLE ALLERGIES
  9. SINGULAIR [Concomitant]
     Indication: ASTHMA
  10. LEVOXYL [Concomitant]
     Indication: HYPERTHYROIDISM
     Dosage: 250 MG
  11. ASPIRIN [Concomitant]
     Indication: PROPHYLAXIS
     Dosage: 81 MG, BID
  12. ADVAIR HFA [Concomitant]
     Indication: ASTHMA
  13. MULTIVITAMIN                       /00097801/ [Concomitant]
     Indication: SUPPLEMENTATION THERAPY
  14. CALCIUM [Concomitant]
     Indication: BLOOD CALCIUM DECREASED

REACTIONS (5)
  - BLOOD GLUCOSE FLUCTUATION [None]
  - CONVULSION [None]
  - GRAND MAL CONVULSION [None]
  - RENAL IMPAIRMENT [None]
  - WEIGHT INCREASED [None]
